FAERS Safety Report 23491478 (Version 2)
Quarter: 2024Q2

REPORT INFORMATION
  Report Type: Spontaneous
  Country: US (occurrence: US)
  Receive Date: 20240207
  Receipt Date: 20240517
  Transmission Date: 20240716
  Serious: No
  Sender: FDA-Public Use
  Company Number: US-HORIZON THERAPEUTICS-HZN-2023-009546

PATIENT

DRUGS (4)
  1. TEPEZZA [Suspect]
     Active Substance: TEPROTUMUMAB-TRBW
     Indication: Endocrine ophthalmopathy
     Dosage: 1ST INFUSION 1ST ROUND
     Route: 042
     Dates: start: 2022
  2. TEPEZZA [Suspect]
     Active Substance: TEPROTUMUMAB-TRBW
     Dosage: 8TH INFUSION 1ST ROUND
     Route: 042
     Dates: start: 2000
  3. TEPEZZA [Suspect]
     Active Substance: TEPROTUMUMAB-TRBW
     Dosage: 1ST INFUSION 2ND ROUND
     Route: 042
     Dates: start: 20231001
  4. TEPEZZA [Suspect]
     Active Substance: TEPROTUMUMAB-TRBW
     Dosage: 2ND INFUSION 2ND ROUND
     Route: 042
     Dates: start: 20240215

REACTIONS (4)
  - Diplopia [Recovering/Resolving]
  - Ocular discomfort [Recovering/Resolving]
  - Off label use [Unknown]
  - Symptom recurrence [Unknown]
